FAERS Safety Report 8170115-3 (Version None)
Quarter: 2012Q1

REPORT INFORMATION
  Report Type: 
  Country: None (occurrence: None)
  Receive Date: 20120228
  Receipt Date: 20120214
  Transmission Date: 20120608
  Serious: Yes (Hospitalization, Other)
  Sender: FDA-Public Use
  Company Number: PHHY2012JP015050

PATIENT
  Age: 70 Year
  Sex: Female

DRUGS (2)
  1. RIVASTIGMINE [Suspect]
     Indication: DEMENTIA ALZHEIMER'S TYPE
     Dosage: 4.5 MG, DAILY
     Route: 062
     Dates: start: 20111101, end: 20111201
  2. RIVASTIGMINE [Suspect]
     Dosage: 9 MG, DAILY
     Route: 062
     Dates: start: 20111201, end: 20120201

REACTIONS (12)
  - UTERINE LEIOMYOMA [None]
  - SPLENIC CALCIFICATION [None]
  - CARDIOMEGALY [None]
  - PERICARDIAL EFFUSION [None]
  - DYSPNOEA [None]
  - PLEURAL EFFUSION [None]
  - BILIARY DILATATION [None]
  - BLOOD GLUCOSE INCREASED [None]
  - HYPERTENSION [None]
  - RESPIRATORY FAILURE [None]
  - OESOPHAGEAL DILATATION [None]
  - HEPATIC CALCIFICATION [None]
